FAERS Safety Report 8505469-9 (Version None)
Quarter: 2012Q2

REPORT INFORMATION
  Report Type: 
  Country: None (occurrence: None)
  Receive Date: 20120405
  Receipt Date: 20090929
  Transmission Date: 20120825
  Serious: Yes (Hospitalization)
  Sender: FDA-Public Use
  Company Number: PHEH2009US12483

PATIENT
  Age: 88 Year
  Sex: Female
  Weight: 63.5 kg

DRUGS (1)
  1. RECLAST [Suspect]
     Indication: OSTEOPOROSIS
     Dosage: YEARLY, INTRAVENOUS
     Route: 042
     Dates: start: 20090107

REACTIONS (3)
  - HEADACHE [None]
  - RETCHING [None]
  - PAIN [None]
